FAERS Safety Report 7974747-4 (Version None)
Quarter: 2011Q4

REPORT INFORMATION
  Report Type: 
  Country: None (occurrence: None)
  Receive Date: 20111213
  Receipt Date: 20111212
  Transmission Date: 20120403
  Serious: No
  Sender: FDA-Public Use
  Company Number: US-BAYER-2011-119439

PATIENT
  Age: 39 Year
  Sex: Female

DRUGS (1)
  1. GADAVIST [Suspect]
     Indication: NUCLEAR MAGNETIC RESONANCE IMAGING
     Dosage: 5.9 ML, UNK
     Route: 042
     Dates: start: 20111212, end: 20111212

REACTIONS (2)
  - GENERALISED ERYTHEMA [None]
  - PRURITUS GENERALISED [None]
